FAERS Safety Report 6724240-1 (Version None)
Quarter: 2010Q2

REPORT INFORMATION
  Report Type: 
  Country: None (occurrence: None)
  Receive Date: 20100513
  Receipt Date: 20100507
  Transmission Date: 20101027
  Serious: Yes (Hospitalization)
  Sender: FDA-Public Use
  Company Number: US-ELI_LILLY_AND_COMPANY-US201005002168

PATIENT
  Sex: Female

DRUGS (10)
  1. HUMULIN 70/30 [Suspect]
     Indication: TYPE 2 DIABETES MELLITUS
     Dosage: UNK, AS NEEDED
     Dates: start: 20091118
  2. NEURONTIN [Concomitant]
     Dates: start: 20091118
  3. NEXIUM [Concomitant]
     Dates: start: 20091118
  4. ZOLOFT [Concomitant]
     Dates: start: 20091118
  5. METFORMIN HYDROCHLORIDE [Concomitant]
     Dosage: UNK, UNK
     Dates: start: 20090101, end: 20100101
  6. POTASSIUM CHLORIDE [Concomitant]
     Dates: start: 20091118
  7. FUROSEMIDE [Concomitant]
     Dates: start: 20091118
  8. TRAZODONE [Concomitant]
     Dates: start: 20091118
  9. ATENOLOL [Concomitant]
     Dates: start: 20091118
  10. SPIRONOLACTONE [Concomitant]
     Dates: start: 20101118

REACTIONS (5)
  - ANAEMIA [None]
  - DIABETES MELLITUS INADEQUATE CONTROL [None]
  - HEPATIC ENCEPHALOPATHY [None]
  - HYPOGLYCAEMIA [None]
  - URINARY TRACT INFECTION [None]
